FAERS Safety Report 10010711 (Version 1)
Quarter: 2014Q1

REPORT INFORMATION
  Report Type: Spontaneous
  Country: US (occurrence: US)
  Receive Date: 20140314
  Receipt Date: 20140314
  Transmission Date: 20141002
  Serious: Yes (Hospitalization)
  Sender: FDA-Public Use
  Company Number: US-TARO PHARMACEUTICALS U.S.A., INC-2014SUN00518

PATIENT
  Age: 34 Year
  Sex: Male

DRUGS (3)
  1. PHENYTOIN SODIUM [Suspect]
     Indication: CONVULSION
     Dosage: 300 MG EVERY MORNING AND 400 MG AT BEDTIME
     Route: 065
  2. ZONISAMIDE [Suspect]
     Indication: CONVULSION
     Dosage: 100 MG, AT BEDTIME
     Route: 065
  3. ZONISAMIDE [Suspect]
     Dosage: 300 MG, AT BEDTIME
     Route: 065

REACTIONS (11)
  - Drug interaction [Recovering/Resolving]
  - Psychotic disorder [Recovered/Resolved]
  - Gait disturbance [Recovering/Resolving]
  - Hyperreflexia [Recovering/Resolving]
  - Dizziness [Recovering/Resolving]
  - Sleep disorder [Recovering/Resolving]
  - Asthenia [Recovering/Resolving]
  - Nystagmus [Recovering/Resolving]
  - Toxicity to various agents [Recovering/Resolving]
  - Palpitations [Recovering/Resolving]
  - Disturbance in attention [Recovering/Resolving]
